FAERS Safety Report 7246401-8 (Version None)
Quarter: 2011Q1

REPORT INFORMATION
  Report Type: 
  Country: None (occurrence: None)
  Receive Date: 20110126
  Receipt Date: 20100326
  Transmission Date: 20110831
  Serious: No
  Sender: FDA-Public Use
  Company Number: US-BAUSCH-2010BL001690

PATIENT
  Age: 85 Year
  Sex: Female

DRUGS (4)
  1. ZYLET [Suspect]
     Indication: OFF LABEL USE
     Route: 047
     Dates: start: 20100325
  2. PRESERVISION AREDS SOFT GELS [Concomitant]
     Route: 048
  3. ZYLET [Suspect]
     Indication: PROPHYLAXIS
     Route: 047
     Dates: start: 20100325
  4. AVASTIN [Concomitant]

REACTIONS (2)
  - WRONG TECHNIQUE IN DRUG USAGE PROCESS [None]
  - EYE IRRITATION [None]
